FAERS Safety Report 26119080 (Version 1)
Quarter: 2025Q4

REPORT INFORMATION
  Report Type: Spontaneous
  Country: US (occurrence: US)
  Receive Date: 20251204
  Receipt Date: 20251204
  Transmission Date: 20260118
  Serious: Yes (Hospitalization)
  Sender: ELI LILLY AND COMPANY
  Company Number: US-ELI_LILLY_AND_COMPANY-US202511031361

PATIENT
  Age: 35 Year
  Sex: Female

DRUGS (2)
  1. TIRZEPATIDE [Interacting]
     Active Substance: TIRZEPATIDE
     Indication: Product used for unknown indication
     Dosage: UNK, UNKNOWN
     Route: 065
  2. LITHIUM [Interacting]
     Active Substance: LITHIUM
     Indication: Product used for unknown indication
     Dosage: UNK, UNKNOWN
     Route: 065

REACTIONS (6)
  - Renal impairment [Unknown]
  - Toxicity to various agents [Recovered/Resolved]
  - Tachycardia [Unknown]
  - Electrolyte imbalance [Unknown]
  - Drug interaction [Unknown]
  - Intentional product misuse [Unknown]
